FAERS Safety Report 13368496 (Version 3)
Quarter: 2017Q2

REPORT INFORMATION
  Report Type: Spontaneous
  Country: US (occurrence: US)
  Receive Date: 20170324
  Receipt Date: 20170530
  Transmission Date: 20170830
  Serious: No
  Sender: FDA-Public Use
  Company Number: US-PFIZER INC-2017124948

PATIENT
  Age: 32 Year
  Sex: Female
  Weight: 64 kg

DRUGS (1)
  1. ADVIL PM [Suspect]
     Active Substance: DIPHENHYDRAMINE CITRATE\IBUPROFEN
     Indication: INSOMNIA
     Dosage: 2 DF, AS NEEDED [IBUPROFEN 200 MG]/[DIPHENHYDRAMINE 38 MG][2 CAPLETS AT BEDTIME]
     Route: 048
     Dates: start: 201609, end: 20170319

REACTIONS (1)
  - Drug ineffective [Not Recovered/Not Resolved]

NARRATIVE: CASE EVENT DATE: 201609
